FAERS Safety Report 4286311-1 (Version None)
Quarter: 2004Q1

REPORT INFORMATION
  Report Type: 
  Country: None (occurrence: None)
  Receive Date: 20040116
  Receipt Date: 20030303
  Transmission Date: 20041129
  Serious: Yes (Other)
  Sender: FDA-Public Use
  Company Number: 333087

PATIENT
  Sex: Female

DRUGS (3)
  1. VERSED [Suspect]
     Indication: ORAL SURGERY
     Dosage: INTRAVENOUS
     Route: 042
  2. BREVITAL SODIUM INJ [Suspect]
     Indication: ORAL SURGERY
  3. METHADONE HCL [Suspect]
     Indication: DRUG ABUSER
     Dosage: ORAL
     Route: 048

REACTIONS (2)
  - BLOOD PRESSURE DECREASED [None]
  - CONVULSION [None]
